FAERS Safety Report 6814583-5 (Version None)
Quarter: 2010Q2

REPORT INFORMATION
  Report Type: 
  Country: None (occurrence: None)
  Receive Date: 20100629
  Receipt Date: 20100617
  Transmission Date: 20101027
  Serious: Yes (Hospitalization)
  Sender: FDA-Public Use
  Company Number: 2010S1000190-003

PATIENT
  Age: 77 Year
  Sex: Female

DRUGS (7)
  1. PITAVASTATIN CALCIUM [Suspect]
     Indication: HYPERLIPIDAEMIA
     Dosage: 2MG, PO
     Route: 048
     Dates: end: 20100107
  2. PROPRANOLOL HYDROCHLORIDE [Concomitant]
  3. WARFARIN POTASSIUM [Concomitant]
  4. SODIUM AZULENE SULFONATE L-GLUTAMINE [Concomitant]
  5. RALOXIFENE HYDROCHLORIDE [Concomitant]
  6. ETIZOLAM [Concomitant]
  7. KETOPROFEN [Concomitant]

REACTIONS (12)
  - ALANINE AMINOTRANSFERASE INCREASED [None]
  - ASPARTATE AMINOTRANSFERASE INCREASED [None]
  - BLOOD ALKALINE PHOSPHATASE INCREASED [None]
  - BLOOD BILIRUBIN INCREASED [None]
  - BLOOD LACTATE DEHYDROGENASE INCREASED [None]
  - CHOLANGITIS [None]
  - CHOLELITHIASIS [None]
  - DECREASED APPETITE [None]
  - DIZZINESS [None]
  - DYSARTHRIA [None]
  - GAMMA-GLUTAMYLTRANSFERASE INCREASED [None]
  - RHABDOMYOLYSIS [None]
